FAERS Safety Report 6527196-X (Version None)
Quarter: 2010Q1

REPORT INFORMATION
  Report Type: 
  Country: None (occurrence: None)
  Receive Date: 20100105
  Receipt Date: 20100105
  Transmission Date: 20100710
  Serious: Yes (Other)
  Sender: FDA-Public Use
  Company Number: Z0002731A

PATIENT
  Sex: Male
  Weight: 93 kg

DRUGS (5)
  1. ZANAMIVIR [Suspect]
     Indication: INFLUENZA
     Dosage: 600MG TWICE PER DAY
     Route: 042
     Dates: start: 20091218
  2. CEFTRIAXONE [Concomitant]
     Indication: PNEUMONIA BACTERIAL
     Dosage: 1G PER DAY
     Route: 042
     Dates: start: 20091217
  3. SPIRAMYCIN [Concomitant]
     Indication: PNEUMONIA BACTERIAL
     Dosage: 1.5IU6 THREE TIMES PER DAY
     Route: 042
     Dates: start: 20091217
  4. TERBUTALINE SULFATE [Concomitant]
     Indication: ASTHMA
     Dosage: 5MG FOUR TIMES PER DAY
     Route: 055
     Dates: start: 20091217
  5. METHYLPREDNISOLONE [Concomitant]
     Indication: ASTHMA
     Dosage: 80MG PER DAY
     Route: 042
     Dates: start: 20091217

REACTIONS (1)
  - CYTOLYTIC HEPATITIS [None]
